FAERS Safety Report 5844722-4 (Version None)
Quarter: 2008Q3

REPORT INFORMATION
  Report Type: 
  Country: None (occurrence: None)
  Receive Date: 20080812
  Receipt Date: 20080808
  Transmission Date: 20090109
  Serious: Yes (Other)
  Sender: FDA-Public Use
  Company Number: US024104

PATIENT
  Age: 38 Year
  Sex: Male
  Weight: 64 kg

DRUGS (2)
  1. PROVIGIL [Suspect]
     Indication: HYPERSOMNIA
     Dosage: 300 MG QD ORAL
     Route: 048
     Dates: start: 20080411, end: 20080528
  2. PENICILLIN [Suspect]
     Indication: INFECTION

REACTIONS (8)
  - ARTHRALGIA [None]
  - DRUG INTERACTION [None]
  - LEUKOCYTOSIS [None]
  - LYMPHADENOPATHY [None]
  - MOUTH ULCERATION [None]
  - NEUTROPHIL COUNT INCREASED [None]
  - RASH [None]
  - URINE ODOUR ABNORMAL [None]
